FAERS Safety Report 11149018 (Version 2)
Quarter: 2015Q3

REPORT INFORMATION
  Report Type: Report from Study
  Country: PL (occurrence: PL)
  Receive Date: 20150529
  Receipt Date: 20150904
  Transmission Date: 20151125
  Serious: Yes (Hospitalization)
  Sender: FDA-Public Use
  Company Number: PL-ASTELLAS-2015US018139

PATIENT
  Age: 7 Year
  Sex: Male

DRUGS (8)
  1. RUPAFIN [Concomitant]
     Active Substance: RUPATADINE FUMARATE
     Indication: DERMATITIS ATOPIC
     Dosage: UNK UNK, UNKNOWN FREQ.
     Route: 065
  2. TACROLIMUS. [Suspect]
     Active Substance: TACROLIMUS
     Indication: DERMATITIS ATOPIC
     Dosage: 0.03 %, ONCE DAILY
     Route: 061
     Dates: start: 200904
  3. AERIUS [Concomitant]
     Active Substance: DESLORATADINE
     Indication: DERMATITIS ATOPIC
     Dosage: 1 TABLET, ONCE DAILY
     Route: 065
  4. BORIC ACID [Concomitant]
     Active Substance: BORIC ACID
     Indication: DERMATITIS ATOPIC
     Dosage: UNK UNK, UNKNOWN FREQ.
     Route: 065
  5. SANDIMMUN NEORAL [Concomitant]
     Active Substance: CYCLOSPORINE
     Indication: DERMATITIS ATOPIC
     Route: 048
     Dates: start: 201405
  6. HEVIRAN                            /00587301/ [Concomitant]
     Indication: DERMATITIS ATOPIC
     Dosage: UNK UNK, UNKNOWN FREQ.
     Route: 065
  7. CORTISOL [Concomitant]
     Active Substance: HYDROCORTISONE
     Indication: DERMATITIS ATOPIC
     Dosage: UNK UNK, UNKNOWN FREQ.
     Route: 065
  8. RAPESEED [Concomitant]
     Indication: DERMATITIS ATOPIC
     Dosage: UNK, UNKNOWN FREQ.
     Route: 065

REACTIONS (2)
  - Eczema herpeticum [Recovered/Resolved]
  - Dermatitis atopic [Recovered/Resolved]

NARRATIVE: CASE EVENT DATE: 201504
